FAERS Safety Report 9265632 (Version 1)
Quarter: 2013Q2

REPORT INFORMATION
  Report Type: Spontaneous
  Country: FR (occurrence: FR)
  Receive Date: 20130501
  Receipt Date: 20130501
  Transmission Date: 20140414
  Serious: Yes (Hospitalization)
  Sender: FDA-Public Use
  Company Number: FR-ASTRAZENECA-2013SE28940

PATIENT
  Age: 18839 Day
  Sex: Male

DRUGS (7)
  1. CRESTOR [Suspect]
     Route: 048
     Dates: start: 20121201, end: 20130109
  2. METHOTREXATE [Suspect]
     Route: 065
     Dates: start: 201203, end: 20130109
  3. SPECIAFOLDINE [Concomitant]
  4. DEPAKINE CHRONO [Concomitant]
  5. LAMICTAL [Concomitant]
  6. KIVEXA [Concomitant]
  7. VIRAMUNE [Concomitant]

REACTIONS (3)
  - Hepatocellular injury [Recovered/Resolved]
  - Cholestasis [Recovered/Resolved]
  - Rhabdomyolysis [Recovered/Resolved]
